FAERS Safety Report 4776596-7 (Version None)
Quarter: 2005Q3

REPORT INFORMATION
  Report Type: 
  Country: None (occurrence: None)
  Receive Date: 20050915
  Receipt Date: 20050906
  Transmission Date: 20060218
  Serious: Yes (Other)
  Sender: FDA-Public Use
  Company Number: 2005125768

PATIENT
  Age: 77 Year
  Sex: Female
  Weight: 87 kg

DRUGS (2)
  1. LYRICA [Suspect]
     Indication: NEUROPATHY
     Dosage: 150 MG (75 MG, 2 IN 1 D), ORAL
     Route: 048
     Dates: start: 20041222
  2. QUININE SULFATE [Concomitant]

REACTIONS (3)
  - HYPERTROPHY BREAST [None]
  - INCREASED APPETITE [None]
  - WEIGHT INCREASED [None]
